FAERS Safety Report 10469820 (Version 1)
Quarter: 2014Q3

REPORT INFORMATION
  Report Type: Spontaneous
  Country: US (occurrence: None)
  Receive Date: 20140919
  Receipt Date: 20140919
  Transmission Date: 20150326
  Serious: Yes (Hospitalization, Other)
  Sender: FDA-Public Use
  Company Number: 2014000038A

PATIENT
  Age: 29 Year
  Sex: Female

DRUGS (2)
  1. TRAZODONE [Suspect]
     Active Substance: TRAZODONE HYDROCHLORIDE
     Indication: LIBIDO DECREASED
  2. WELLBUTRIN [Suspect]
     Active Substance: BUPROPION HYDROCHLORIDE
     Indication: LIBIDO DECREASED
     Dosage: UPTITRATED, DURATION 1 DAY

REACTIONS (5)
  - Pain [None]
  - Off label use [None]
  - Priapism [None]
  - Clitoral engorgement [None]
  - Labia enlarged [None]
